FAERS Safety Report 8512147-9 (Version None)
Quarter: 2012Q3

REPORT INFORMATION
  Report Type: 
  Country: None (occurrence: None)
  Receive Date: 20120716
  Receipt Date: 20120705
  Transmission Date: 20120928
  Serious: Yes (Other)
  Sender: FDA-Public Use
  Company Number: JP-VERTEX PHARMACEUTICALS INC.-AE-2012-010042

PATIENT
  Age: 68 Year
  Sex: Male

DRUGS (14)
  1. TELAVIC (TELAPREVIR) [Suspect]
     Route: 048
     Dates: start: 20120522, end: 20120528
  2. PEGINTERFERON ALFA-2B [Concomitant]
     Route: 058
     Dates: start: 20120529
  3. TELAVIC (TELAPREVIR) [Suspect]
     Route: 048
     Dates: start: 20120411, end: 20120515
  4. RIBAVIRIN [Concomitant]
     Indication: HEPATITIS C
     Route: 048
     Dates: start: 20120320, end: 20120416
  5. RIBAVIRIN [Concomitant]
     Route: 048
     Dates: start: 20120417, end: 20120507
  6. TELAVIC (TELAPREVIR) [Suspect]
     Indication: HEPATITIS C
     Route: 048
     Dates: start: 20120320, end: 20120410
  7. TELAVIC (TELAPREVIR) [Suspect]
     Route: 048
     Dates: start: 20120529, end: 20120611
  8. PEGINTERFERON ALFA-2B [Concomitant]
     Indication: HEPATITIS C
     Route: 058
     Dates: start: 20120320, end: 20120508
  9. TAMSULOSIN HCL [Concomitant]
     Route: 048
     Dates: start: 20120321
  10. ALLOPURINOL [Concomitant]
     Route: 048
     Dates: start: 20120403
  11. PEGINTERFERON ALFA-2B [Concomitant]
     Route: 058
     Dates: start: 20120515, end: 20120522
  12. RIBAVIRIN [Concomitant]
     Route: 048
     Dates: start: 20120605, end: 20120611
  13. RIBAVIRIN [Concomitant]
     Route: 048
     Dates: start: 20120612
  14. RIBAVIRIN [Concomitant]
     Route: 048
     Dates: start: 20120508, end: 20120515

REACTIONS (1)
  - RETINOPATHY [None]
